FAERS Safety Report 23417738 (Version 1)
Quarter: 2024Q1

REPORT INFORMATION
  Report Type: Spontaneous
  Country: US (occurrence: US)
  Receive Date: 20240118
  Receipt Date: 20240118
  Transmission Date: 20240410
  Serious: Yes (Other)
  Sender: FDA-Public Use
  Company Number: US-Vifor (International) Inc.-VIT-2024-00418

PATIENT
  Age: 47 Year
  Sex: Male
  Weight: 131.9 kg

DRUGS (1)
  1. MIRCERA [Suspect]
     Active Substance: METHOXY POLYETHYLENE GLYCOL-EPOETIN BETA
     Indication: Nephrogenic anaemia
     Dosage: DOSE 2 ON 08-DEC-2023
     Route: 040
     Dates: start: 20231124, end: 20231208

REACTIONS (5)
  - Drug hypersensitivity [Unknown]
  - Dyspnoea [Recovered/Resolved]
  - Hyperhidrosis [Recovering/Resolving]
  - Erythema [Recovered/Resolved]
  - Blood pressure increased [Recovering/Resolving]

NARRATIVE: CASE EVENT DATE: 20231208
